FAERS Safety Report 14989354 (Version 1)
Quarter: 2018Q2

REPORT INFORMATION
  Report Type: Spontaneous
  Country: US (occurrence: US)
  Receive Date: 20180608
  Receipt Date: 20180608
  Transmission Date: 20180711
  Serious: Yes (Other)
  Sender: FDA-Public Use
  Company Number: US-PFIZER INC-2018157319

PATIENT
  Age: 11 Year
  Sex: Male

DRUGS (2)
  1. GENOTROPIN MQ [Suspect]
     Active Substance: SOMATROPIN
     Dosage: 1 MG, DAILY (THEY DID 1/2 DOSING FOR THE FIRST 2 WEEKS)
     Dates: start: 20180213, end: 201805
  2. GENOTROPIN MQ [Suspect]
     Active Substance: SOMATROPIN
     Dosage: UNK (2/3 AND DID 1/2 DOSING FOR THE FIRST 2 WEEKS)

REACTIONS (3)
  - Autoimmune disorder [Unknown]
  - Drug dose omission [Unknown]
  - Intentional product use issue [Unknown]
